FAERS Safety Report 8624116-9 (Version None)
Quarter: 2012Q3

REPORT INFORMATION
  Report Type: 
  Country: None (occurrence: None)
  Receive Date: 20120824
  Receipt Date: 20120824
  Transmission Date: 20120928
  Serious: No
  Sender: FDA-Public Use
  Company Number: None

PATIENT
  Age: 52 Year
  Sex: Female

DRUGS (1)
  1. ENBREL [Suspect]
     Indication: PSORIATIC ARTHROPATHY
     Dosage: 50 MCG Q 10 DAYS SQ
     Route: 058
     Dates: start: 20101012

REACTIONS (2)
  - MEMORY IMPAIRMENT [None]
  - FEELING ABNORMAL [None]
